FAERS Safety Report 8324977-7 (Version None)
Quarter: 2012Q2

REPORT INFORMATION
  Report Type: 
  Country: None (occurrence: None)
  Receive Date: 20120501
  Receipt Date: 20120420
  Transmission Date: 20120825
  Serious: Yes (Hospitalization)
  Sender: FDA-Public Use
  Company Number: FR-SANOFI-AVENTIS-2012SA027933

PATIENT
  Age: 19 Year
  Sex: Female

DRUGS (2)
  1. RIFADIN [Suspect]
     Route: 048
     Dates: start: 20110723, end: 20110812
  2. MYCOPHENOLATE MOFETIL (CELLCEPT) [Suspect]
     Route: 048
     Dates: start: 20110316, end: 20110906

REACTIONS (1)
  - MIXED LIVER INJURY [None]
